FAERS Safety Report 14976645 (Version 2)
Quarter: 2019Q3

REPORT INFORMATION
  Report Type: Report from Study
  Country: US (occurrence: US)
  Receive Date: 20180605
  Receipt Date: 20190903
  Transmission Date: 20191004
  Serious: Yes (Hospitalization, Other)
  Sender: FDA-Public Use
  Company Number: US-ACTELION-A-US2018-173260

PATIENT
  Sex: Female
  Weight: 38 kg

DRUGS (3)
  1. BOSENTAN TABLET 32 MG PED US [Suspect]
     Active Substance: BOSENTAN
     Indication: PULMONARY HYPERTENSION
     Dosage: 16 MG, BID
     Route: 048
  2. BOSENTAN TABLET 32 MG PED US [Suspect]
     Active Substance: BOSENTAN
     Dosage: 32 MG, BID
     Route: 048
  3. REVATIO [Concomitant]
     Active Substance: SILDENAFIL CITRATE

REACTIONS (6)
  - Gastroenteritis viral [Unknown]
  - Coagulation time prolonged [Unknown]
  - Malaise [Unknown]
  - Respiratory tract infection viral [Unknown]
  - Venous occlusion [Unknown]
  - International normalised ratio increased [Unknown]
